FAERS Safety Report 4946439-7 (Version None)
Quarter: 2006Q1

REPORT INFORMATION
  Report Type: 
  Country: None (occurrence: None)
  Receive Date: 20060313
  Receipt Date: 20060224
  Transmission Date: 20060701
  Serious: Yes (Hospitalization)
  Sender: FDA-Public Use
  Company Number: 2006-00436

PATIENT
  Age: 64 Year
  Sex: Male

DRUGS (13)
  1. VELCADE [Suspect]
     Indication: MULTIPLE MYELOMA
     Dates: start: 20040927, end: 20051018
  2. THALIDOMIDE (THALIDOMIDE) [Suspect]
     Indication: MULTIPLE MYELOMA
     Dosage: 100.00 MG, QD; ORAL
     Route: 048
     Dates: start: 20040927, end: 20051018
  3. MULTIVITAMINS (ERGOCALCIFEROL, PANTHENOL, NICOTINAMIDE, RIBOFLAVIN, TH [Concomitant]
  4. PRAVACHOL [Concomitant]
  5. QUININE [Concomitant]
  6. COLACE (DOCUSATE SODIUM) [Concomitant]
  7. SENOKOT [Concomitant]
  8. SPIRIVA (TIOTROPIUM BROMIDE) INHALER [Concomitant]
  9. PERCOCET [Concomitant]
  10. CEFTIN [Concomitant]
  11. CIPRO (CIPROFLOXACIN) EAR DROPS [Concomitant]
  12. LACTULOSE [Concomitant]
  13. ALLEGRA [Concomitant]

REACTIONS (7)
  - CHILLS [None]
  - EAR PAIN [None]
  - NEUTROPENIA [None]
  - OEDEMA PERIPHERAL [None]
  - OTORRHOEA [None]
  - PLATELET COUNT DECREASED [None]
  - PYREXIA [None]
